FAERS Safety Report 7311021-3 (Version None)
Quarter: 2011Q1

REPORT INFORMATION
  Report Type: 
  Country: None (occurrence: None)
  Receive Date: 20110224
  Receipt Date: 20110209
  Transmission Date: 20110831
  Serious: Yes (Life-Threatening, Hospitalization)
  Sender: FDA-Public Use
  Company Number: US-CELGENEUS-163-21880-11021490

PATIENT
  Sex: Female

DRUGS (8)
  1. REVLIMID [Suspect]
     Route: 048
     Dates: start: 20100201
  2. CALCIUM [Concomitant]
     Route: 065
  3. M.V.I. [Concomitant]
     Route: 065
  4. REVLIMID [Suspect]
     Indication: MULTIPLE MYELOMA
     Route: 048
     Dates: start: 20100601, end: 20110101
  5. MAGNESIUM SULFATE [Concomitant]
     Route: 065
  6. ASA [Concomitant]
     Route: 065
  7. DECADRON [Suspect]
     Indication: MULTIPLE MYELOMA
     Route: 065
  8. AMLODIPINE [Concomitant]
     Route: 065

REACTIONS (1)
  - DYSPNOEA [None]
